FAERS Safety Report 8448389-0 (Version None)
Quarter: 2012Q2

REPORT INFORMATION
  Report Type: 
  Country: None (occurrence: None)
  Receive Date: 20120619
  Receipt Date: 20120612
  Transmission Date: 20120825
  Serious: Yes (Other)
  Sender: FDA-Public Use
  Company Number: US-BAYER-2012-053080

PATIENT
  Age: 29 Year
  Sex: Female
  Weight: 68.481 kg

DRUGS (2)
  1. MIRENA [Suspect]
     Indication: MENORRHAGIA
     Dosage: 20 ?G/D, CONT
     Route: 015
     Dates: start: 20120401
  2. NEURONTIN [Concomitant]
     Indication: ANXIETY
     Dosage: 300 MG, TID
     Dates: start: 20111212

REACTIONS (1)
  - DEAFNESS [None]
